FAERS Safety Report 7283000-6 (Version None)
Quarter: 2011Q1

REPORT INFORMATION
  Report Type: 
  Country: None (occurrence: None)
  Receive Date: 20110209
  Receipt Date: 20110204
  Transmission Date: 20110831
  Serious: Yes (Other)
  Sender: FDA-Public Use
  Company Number: CA-PFIZER INC-2011026141

PATIENT
  Age: 60 Year
  Sex: Female

DRUGS (2)
  1. AVALIDE [Concomitant]
     Dosage: UNK
  2. CHAMPIX [Suspect]
     Dosage: UNK
     Dates: start: 20110101

REACTIONS (2)
  - HEART RATE INCREASED [None]
  - HYPERTENSION [None]
